FAERS Safety Report 5672139-4 (Version None)
Quarter: 2008Q1

REPORT INFORMATION
  Report Type: 
  Country: None (occurrence: None)
  Receive Date: 20080319
  Receipt Date: 20080307
  Transmission Date: 20080703
  Serious: Yes (Hospitalization, Other)
  Sender: FDA-Public Use
  Company Number: US-ELI_LILLY_AND_COMPANY-US200803001676

PATIENT
  Age: 29 Year
  Sex: Male

DRUGS (4)
  1. ZYPREXA [Suspect]
     Indication: SCHIZOPHRENIA
     Dosage: 10 MG, UNK
     Dates: start: 20020101
  2. ZYPREXA [Suspect]
     Dosage: 7.5 MG, UNK
  3. ZYPREXA [Suspect]
     Dosage: 5 MG, UNK
  4. ZYPREXA [Suspect]
     Dosage: 15 MG, UNK

REACTIONS (10)
  - ABNORMAL BEHAVIOUR [None]
  - ACTIVITIES OF DAILY LIVING IMPAIRED [None]
  - AGGRESSION [None]
  - ASOCIAL BEHAVIOUR [None]
  - DELUSIONAL DISORDER, UNSPECIFIED TYPE [None]
  - DRUG INEFFECTIVE [None]
  - FEAR [None]
  - HALLUCINATION, AUDITORY [None]
  - PARANOIA [None]
  - WEIGHT INCREASED [None]
